FAERS Safety Report 8782879 (Version 2)
Quarter: 2020Q3

REPORT INFORMATION
  Report Type: Spontaneous
  Country: PL (occurrence: PL)
  Receive Date: 20120913
  Receipt Date: 20200916
  Transmission Date: 20201103
  Serious: Yes (Hospitalization, Other)
  Sender: FDA-Public Use
  Company Number: PHHY2012PL078328

PATIENT
  Age: 52 Year
  Sex: Female

DRUGS (4)
  1. METOCLOPRAMIDE. [Suspect]
     Active Substance: METOCLOPRAMIDE
     Indication: PAIN
     Dosage: 30 MG, QD, ONCE A DAY
     Route: 065
  2. VENLAFAXINE [Suspect]
     Active Substance: VENLAFAXINE HYDROCHLORIDE
     Indication: DEPRESSION
     Dosage: 150 MG, QD, ONCE A DAY
     Route: 065
  3. FENTANYL. [Suspect]
     Active Substance: FENTANYL
     Indication: PAIN
     Dosage: 50 UG, QD
     Route: 065
  4. METOCLOPRAMIDE. [Suspect]
     Active Substance: METOCLOPRAMIDE
     Indication: DEPRESSION

REACTIONS (9)
  - Serotonin syndrome [Unknown]
  - Nausea [Unknown]
  - Vomiting [Unknown]
  - Hyperreflexia [Unknown]
  - Body temperature increased [Unknown]
  - Clonus [Unknown]
  - Blood creatine phosphokinase increased [Unknown]
  - Hyperhidrosis [Unknown]
  - Tachycardia [Unknown]
